FAERS Safety Report 23038904 (Version 1)
Quarter: 2023Q4

REPORT INFORMATION
  Report Type: Spontaneous
  Country: US (occurrence: US)
  Receive Date: 20231006
  Receipt Date: 20231006
  Transmission Date: 20240110
  Serious: Yes (Other)
  Sender: FDA-Public Use
  Company Number: US-SANDOZ-SDZ2023US034651

PATIENT
  Sex: Male
  Weight: 126.98 kg

DRUGS (1)
  1. METHOTREXATE [Suspect]
     Active Substance: METHOTREXATE
     Indication: Psoriasis
     Route: 065

REACTIONS (26)
  - Paralysis [Unknown]
  - Syncope [Unknown]
  - Depression [Unknown]
  - Dizziness [Unknown]
  - Wheezing [Unknown]
  - Joint swelling [Unknown]
  - Hypoaesthesia [Unknown]
  - Vision blurred [Unknown]
  - Sinus disorder [Unknown]
  - Hypertension [Unknown]
  - Muscle spasms [Unknown]
  - Joint stiffness [Unknown]
  - Sleep disorder [Unknown]
  - Anxiety [Unknown]
  - Poor peripheral circulation [Unknown]
  - Hair disorder [Unknown]
  - Vertigo [Unknown]
  - Dyspnoea [Unknown]
  - Nausea [Unknown]
  - Fatigue [Unknown]
  - Vomiting [Unknown]
  - Therapeutic product effect incomplete [Unknown]
  - Chest pain [Unknown]
  - Arthralgia [Unknown]
  - Rash [Unknown]
  - Pruritus [Unknown]
